FAERS Safety Report 22524328 (Version 1)
Quarter: 2023Q2

REPORT INFORMATION
  Report Type: Spontaneous
  Country: US (occurrence: US)
  Receive Date: 20230606
  Receipt Date: 20230606
  Transmission Date: 20230721
  Serious: Yes (Hospitalization)
  Sender: FDA-Public Use
  Company Number: US-Fresenius Medical Care Renal Therapies Group-FMC-2305-000527

PATIENT
  Age: 56 Year
  Sex: Male
  Weight: 130 kg

DRUGS (1)
  1. DELFLEX WITH DEXTROSE 1.5% LOW MAGNESIUM LOW CALCIUM [Suspect]
     Active Substance: CALCIUM CHLORIDE\DEXTROSE\MAGNESIUM CHLORIDE\SODIUM CHLORIDE\SODIUM LACTATE
     Indication: End stage renal disease
     Dosage: 3000 ML FOR 6 CYCLES WITH NO LAST FILL AND NO DAYTIME EXCHANGE, SINCE DECEMBER 2019.
     Route: 033

REACTIONS (1)
  - Peritonitis bacterial [Unknown]
